FAERS Safety Report 9626127 (Version 1)
Quarter: 2013Q4

REPORT INFORMATION
  Report Type: Spontaneous
  Country: US (occurrence: US)
  Receive Date: 20131016
  Receipt Date: 20131016
  Transmission Date: 20140711
  Serious: Yes (Other)
  Sender: FDA-Public Use
  Company Number: US-PURDUE-USA-2013-0107568

PATIENT
  Sex: Female

DRUGS (1)
  1. COLACE [Suspect]
     Indication: PRODUCT USED FOR UNKNOWN INDICATION
     Dosage: 100 MG, SEE TEXT
     Route: 048

REACTIONS (3)
  - Cervix carcinoma [Unknown]
  - Cervix haemorrhage uterine [Unknown]
  - Rectal haemorrhage [Unknown]
